FAERS Safety Report 5318770-7 (Version None)
Quarter: 2007Q2

REPORT INFORMATION
  Report Type: 
  Country: None (occurrence: None)
  Receive Date: 20070508
  Receipt Date: 20070502
  Transmission Date: 20071010
  Serious: Yes (Other)
  Sender: FDA-Public Use
  Company Number: US-ASTRAZENECA-2007UW09370

PATIENT

DRUGS (3)
  1. ATACAND [Suspect]
     Indication: CARDIAC FAILURE CONGESTIVE
     Route: 048
  2. SPIRONOLACTONE [Concomitant]
  3. COREG [Concomitant]

REACTIONS (2)
  - EJECTION FRACTION DECREASED [None]
  - HYPOKALAEMIA [None]
